FAERS Safety Report 6441076-X (Version None)
Quarter: 2009Q4

REPORT INFORMATION
  Report Type: 
  Country: None (occurrence: None)
  Receive Date: 20091113
  Receipt Date: 20091113
  Transmission Date: 20100525
  Serious: Yes (Hospitalization)
  Sender: FDA-Public Use
  Company Number: None

PATIENT
  Sex: Male

DRUGS (4)
  1. GMCSF [Suspect]
     Indication: PROSTATE CANCER
     Dosage: 250 MG/M2 QD X 14 DAYS SQ
     Route: 058
     Dates: start: 20090325, end: 20090923
  2. LEVOTHROID [Concomitant]
  3. METOPROLOL TARTRATE [Concomitant]
  4. OMEPRAZOLE [Concomitant]

REACTIONS (4)
  - ASTHENIA [None]
  - DIARRHOEA [None]
  - FATIGUE [None]
  - HAEMOGLOBIN DECREASED [None]
